FAERS Safety Report 6849193-7 (Version None)
Quarter: 2010Q3

REPORT INFORMATION
  Report Type: 
  Country: None (occurrence: None)
  Receive Date: 20100716
  Receipt Date: 20100714
  Transmission Date: 20110219
  Serious: Yes (Death, Hospitalization)
  Sender: FDA-Public Use
  Company Number: PHHY2010MT14932

PATIENT
  Age: 62 Year
  Sex: Male

DRUGS (3)
  1. ZOMETA [Suspect]
     Indication: METASTASES TO BONE
     Dosage: 4MG EVERY 4 WEEKS
  2. ZOMETA [Suspect]
     Indication: BONE PAIN
  3. VINORELBINE [Concomitant]

REACTIONS (7)
  - BLOOD CREATININE INCREASED [None]
  - CONCOMITANT DISEASE AGGRAVATED [None]
  - CONVULSION [None]
  - GENERAL PHYSICAL HEALTH DETERIORATION [None]
  - HYPOCALCAEMIA [None]
  - TETANY [None]
  - TREMOR [None]
